FAERS Safety Report 16205916 (Version 4)
Quarter: 2023Q4

REPORT INFORMATION
  Report Type: Report from Study
  Country: IT (occurrence: IT)
  Receive Date: 20190417
  Receipt Date: 20231210
  Transmission Date: 20240109
  Serious: Yes (Other)
  Sender: FDA-Public Use
  Company Number: IT-AUROBINDO-AUR-APL-2019-019474

PATIENT
  Age: 67 Year
  Sex: Female

DRUGS (2)
  1. SIMVASTATIN [Suspect]
     Active Substance: SIMVASTATIN
     Indication: Product used for unknown indication
     Dosage: UNK
     Route: 048
  2. ATORVASTATIN [Suspect]
     Active Substance: ATORVASTATIN
     Indication: Product used for unknown indication
     Dosage: 20 MILLIGRAM
     Route: 048

REACTIONS (5)
  - Immune-mediated myositis [Recovered/Resolved]
  - Blood creatine phosphokinase increased [Unknown]
  - Muscular weakness [Recovered/Resolved]
  - Myalgia [Recovered/Resolved]
  - Drug ineffective [Unknown]
